FAERS Safety Report 8018133-X (Version None)
Quarter: 2011Q4

REPORT INFORMATION
  Report Type: 
  Country: None (occurrence: None)
  Receive Date: 20111227
  Receipt Date: 20111212
  Transmission Date: 20120403
  Serious: Yes (Hospitalization)
  Sender: FDA-Public Use
  Company Number: 2011AP002945

PATIENT
  Age: 75 Year
  Sex: Female

DRUGS (11)
  1. LEVOTHYROXINE SODIUM [Concomitant]
  2. BENDROFLUAZIDE (BENDROFLUMETHIAZIDE) [Concomitant]
  3. DEXAMETHASONE [Concomitant]
  4. CLARITHROMYCIN [Suspect]
     Indication: MALAISE
     Dosage: PO
     Route: 048
  5. ALENDRONIC ACID (ALENDRONIC ACID) [Concomitant]
  6. CYCLOSPORINE [Suspect]
     Indication: CHRONIC LYMPHOCYTIC LEUKAEMIA
     Dosage: 110 MG;PO
     Route: 048
  7. ISOSORBIDE MONONITRATE [Concomitant]
  8. RAMIPRIL [Concomitant]
  9. RANITIDINE HYDROCHLORIDE [Concomitant]
  10. AMITRIPTYLINE HCL [Concomitant]
  11. ATENOLOL [Concomitant]

REACTIONS (2)
  - RENAL FAILURE ACUTE [None]
  - MALAISE [None]
